FAERS Safety Report 19361232 (Version 2)
Quarter: 2021Q2

REPORT INFORMATION
  Report Type: Report from Study
  Country: FR (occurrence: FR)
  Receive Date: 20210601
  Receipt Date: 20210611
  Transmission Date: 20210717
  Serious: Yes (Hospitalization)
  Sender: FDA-Public Use
  Company Number: FR-PFIZER INC-2021493160

PATIENT
  Age: 78 Year
  Sex: Female
  Weight: 55 kg

DRUGS (10)
  1. PALBOCICLIB [Suspect]
     Active Substance: PALBOCICLIB
     Dosage: 75 MG DAILY, CYCLIC, 3 WEEKS OUT OF 4
     Route: 048
     Dates: end: 20210427
  2. NITRIDERM [Concomitant]
     Active Substance: NITROGLYCERIN
     Indication: ANGINA PECTORIS
     Dosage: 1 PATCH AT 8 AM, 4 PM, AT MIDNIGHT
     Route: 062
  3. LETROZOLE. [Suspect]
     Active Substance: LETROZOLE
     Indication: BREAST CANCER METASTATIC
     Dosage: 2.5 MG, 1X/DAY
     Route: 048
     Dates: start: 20170901, end: 20210427
  4. INNOHEP [Concomitant]
     Active Substance: TINZAPARIN SODIUM
     Indication: PULMONARY EMBOLISM
     Dosage: 10000 IU, DAILY
     Route: 058
     Dates: start: 20201230
  5. CANDESARTAN. [Concomitant]
     Active Substance: CANDESARTAN
     Dosage: 2 X 16 MG, 1X/DAY
     Route: 048
  6. BISOCE [Concomitant]
     Active Substance: BISOPROLOL
     Indication: ANGINA PECTORIS
     Dosage: 2 DF, 1X/DAY
     Route: 048
  7. KARDEGIC [Concomitant]
     Active Substance: ASPIRIN DL-LYSINE
     Dosage: 160 MG, DAILY, IN THE MORNING
     Route: 048
  8. PALBOCICLIB [Suspect]
     Active Substance: PALBOCICLIB
     Indication: BREAST CANCER METASTATIC
     Dosage: 125 MG DAILY (3 WEEKS OUT OF 4)
     Route: 048
     Dates: start: 20170804
  9. DOLIPRANE [Concomitant]
     Active Substance: ACETAMINOPHEN
     Indication: PAIN
     Dosage: 1 G EVERY 8 HOURS IF NECESSARY
     Route: 048
  10. PANTOPRAZOLE [Concomitant]
     Active Substance: PANTOPRAZOLE
     Dosage: 20 MG, 1X/DAY
     Route: 048

REACTIONS (1)
  - General physical health deterioration [Recovered/Resolved]

NARRATIVE: CASE EVENT DATE: 20210428
